FAERS Safety Report 10965151 (Version 2)
Quarter: 2023Q4

REPORT INFORMATION
  Report Type: Other
  Country: US (occurrence: None)
  Receive Date: 20150330
  Receipt Date: 20231016
  Transmission Date: 20240109
  Serious: Yes (Death, Other)
  Sender: FDA-Public Use
  Company Number: US-ROCHE-1555489

PATIENT

DRUGS (4)
  1. RITUXIMAB [Suspect]
     Active Substance: RITUXIMAB
     Indication: Central nervous system lymphoma
     Dosage: 500 MG/M2 IV; DAY 2
     Route: 042
  2. METHOTREXATE [Suspect]
     Active Substance: METHOTREXATE
     Indication: Central nervous system lymphoma
     Dosage: 3.5 MG/M2 IV (OVER 2 HOURS)
     Route: 042
  3. PROCARBAZINE [Suspect]
     Active Substance: PROCARBAZINE
     Indication: Central nervous system lymphoma
     Dosage: 100 MG/M2 PER DAY WAS GIVEN ON DAYS 2 TO 8 DURING ODD CYCLES
     Route: 042
  4. VINCRISTINE [Suspect]
     Active Substance: VINCRISTINE
     Indication: Central nervous system lymphoma
     Dosage: 1.4 MG/M2 (CAPPED AT 2.8 MG).
     Route: 042

REACTIONS (16)
  - Neutrophil count abnormal [Unknown]
  - Alanine aminotransferase abnormal [Unknown]
  - Aspartate aminotransferase abnormal [Unknown]
  - Thrombosis [Unknown]
  - Embolism [Unknown]
  - Encephalopathy [Unknown]
  - Haemoglobin abnormal [Unknown]
  - Infection [Unknown]
  - Blood creatinine abnormal [Unknown]
  - Neuropathy peripheral [Unknown]
  - Fatigue [Unknown]
  - Constipation [Unknown]
  - Syncope [Unknown]
  - Stevens-Johnson syndrome [Fatal]
  - Septic shock [Fatal]
  - Graft versus host disease [Fatal]
